FAERS Safety Report 8652346 (Version 2)
Quarter: 2012Q4

REPORT INFORMATION
  Report Type: 
  Country: US (occurrence: US)
  Receive Date: 20120706
  Receipt Date: 20121126
  Transmission Date: 20130627
  Serious: Yes (Hospitalization)
  Sender: FDA-Public Use
  Company Number: US-BAYER-2012-065120

PATIENT
  Age: 37 Year
  Sex: Female
  Weight: 102.4 kg

DRUGS (2)
  1. YAZ [Suspect]
     Indication: BIRTH CONTROL
     Dosage: UNK
     Dates: start: 2006, end: 2006
  2. YASMIN [Suspect]
     Indication: BIRTH CONTROL
     Dosage: UNK
     Dates: start: 2006, end: 2006

REACTIONS (7)
  - Deep vein thrombosis [Recovered/Resolved]
  - Injury [Recovered/Resolved]
  - Pain [Recovered/Resolved]
  - Anxiety [None]
  - Deformity [None]
  - Dyspnoea [None]
  - Chest discomfort [None]
